FAERS Safety Report 7183194-7 (Version None)
Quarter: 2010Q4

REPORT INFORMATION
  Report Type: 
  Country: None (occurrence: None)
  Receive Date: 20101222
  Receipt Date: 20100114
  Transmission Date: 20110411
  Serious: No
  Sender: FDA-Public Use
  Company Number: A0590881A

PATIENT
  Age: 46 Year
  Sex: Male

DRUGS (3)
  1. FLONASE [Suspect]
     Dosage: 2SPR PER DAY
     Route: 045
     Dates: start: 20051001
  2. VENTOLIN [Suspect]
     Indication: ASTHMA
     Dosage: 1PUFF SIX TIMES PER DAY
     Route: 055
     Dates: start: 20090113
  3. GLUCOPHAGE [Concomitant]

REACTIONS (4)
  - DIZZINESS [None]
  - DRUG INEFFECTIVE [None]
  - HEADACHE [None]
  - NAUSEA [None]
